FAERS Safety Report 4864282-4 (Version None)
Quarter: 2005Q4

REPORT INFORMATION
  Report Type: 
  Country: None (occurrence: None)
  Receive Date: 20051221
  Receipt Date: 20051221
  Transmission Date: 20060501
  Serious: No
  Sender: FDA-Public Use
  Company Number: None

PATIENT
  Age: 55 Year
  Sex: Male
  Weight: 106.1417 kg

DRUGS (1)
  1. BUPROPION HCL [Suspect]
     Indication: MAJOR DEPRESSION
     Dosage: 150 MG   DAILY (AM)  PO
     Route: 048
     Dates: start: 20051116, end: 20051201

REACTIONS (2)
  - ABNORMAL BEHAVIOUR [None]
  - DEPERSONALISATION [None]
